FAERS Safety Report 6708597-3 (Version None)
Quarter: 2010Q2

REPORT INFORMATION
  Report Type: 
  Country: None (occurrence: None)
  Receive Date: 20100503
  Receipt Date: 20100425
  Transmission Date: 20101027
  Serious: Yes (Congenital Anomaly)
  Sender: FDA-Public Use
  Company Number: PH-ABBOTT-09P-128-0590664-00

PATIENT
  Sex: Male

DRUGS (1)
  1. KLARICID [Suspect]
     Indication: DRUG EXPOSURE DURING PREGNANCY
     Route: 064

REACTIONS (3)
  - ACROCHORDON [None]
  - DRUG EXPOSURE DURING PREGNANCY [None]
  - GLUCOSE-6-PHOSPHATE DEHYDROGENASE DEFICIENCY [None]
